FAERS Safety Report 7486504-6 (Version None)
Quarter: 2011Q2

REPORT INFORMATION
  Report Type: 
  Country: None (occurrence: None)
  Receive Date: 20110517
  Receipt Date: 20110502
  Transmission Date: 20111010
  Serious: Yes (Hospitalization)
  Sender: FDA-Public Use
  Company Number: US-UCBSA-032169

PATIENT
  Age: 31 Year
  Sex: Female
  Weight: 59 kg

DRUGS (17)
  1. LEVETIRACETAM [Suspect]
     Route: 048
     Dates: start: 20040801
  2. DIVALPROEX SODIUM [Concomitant]
     Indication: EPILEPSY
     Route: 048
     Dates: start: 19960623, end: 20110319
  3. PHENYTOIN [Concomitant]
     Indication: EPILEPSY
     Route: 048
     Dates: start: 19860215
  4. DIVALPROEX SODIUM [Concomitant]
     Dosage: ER FORMULATION
     Route: 048
     Dates: start: 20110320
  5. LEVETIRACETAM [Suspect]
     Route: 048
     Dates: start: 20040701
  6. PHENYTOIN [Concomitant]
     Dates: start: 19890101
  7. LEVETIRACETAM [Suspect]
     Indication: EPILEPSY
     Route: 048
     Dates: start: 20040217
  8. LEVETIRACETAM [Suspect]
     Route: 048
     Dates: start: 20040220
  9. LEVETIRACETAM [Suspect]
     Route: 048
     Dates: start: 20040225
  10. PHENYTOIN [Concomitant]
     Dates: start: 19910615
  11. LEVETIRACETAM [Suspect]
     Route: 048
     Dates: start: 20040218
  12. LEVETIRACETAM [Suspect]
     Route: 048
     Dates: start: 20040308
  13. PHENYTOIN [Concomitant]
     Dates: start: 19920101
  14. PHENYTOIN [Concomitant]
     Dates: start: 19920801
  15. LEVETIRACETAM [Suspect]
     Route: 048
     Dates: start: 20040601
  16. LEVETIRACETAM [Suspect]
     Route: 048
     Dates: start: 20081025
  17. PHENYTOIN [Concomitant]
     Dates: start: 19860601

REACTIONS (8)
  - HYPOGLYCAEMIA [None]
  - ABNORMAL LOSS OF WEIGHT [None]
  - DECREASED APPETITE [None]
  - VITAMIN C DEFICIENCY [None]
  - MEMORY IMPAIRMENT [None]
  - AMNESIA [None]
  - ANXIETY [None]
  - ABNORMAL DREAMS [None]
